FAERS Safety Report 7897314-X (Version None)
Quarter: 2011Q4

REPORT INFORMATION
  Report Type: 
  Country: None (occurrence: None)
  Receive Date: 20111107
  Receipt Date: 20111028
  Transmission Date: 20120403
  Serious: Yes (Life-Threatening, Other)
  Sender: FDA-Public Use
  Company Number: PHHY2011RS95917

PATIENT
  Age: 8 Year
  Sex: Male

DRUGS (6)
  1. CYCLOSPORINE [Suspect]
     Dosage: 10 MG/KG, UNK
  2. METHYLPREDNISOLONE [Concomitant]
     Dosage: 10 MG/KG/D FOR 3 DAYS
  3. CYCLOSPORINE [Suspect]
     Indication: EVANS SYNDROME
     Dosage: 6 MG/KG/DAY, UNK
  4. CYCLOSPORINE [Suspect]
     Dosage: 1.8 MG/KG
  5. PREDNISOLONE [Concomitant]
     Dosage: 2 MG/KG, UNK
  6. CYCLOSPORINE [Suspect]
     Dosage: 2 MG/KG, UNK

REACTIONS (15)
  - CD4/CD8 RATIO DECREASED [None]
  - HAEMOGLOBIN DECREASED [None]
  - THROMBOCYTOPENIA [None]
  - INFECTION [None]
  - EPSTEIN-BARR VIRUS INFECTION [None]
  - COOMBS TEST POSITIVE [None]
  - AUTOIMMUNE LYMPHOPROLIFERATIVE SYNDROME [None]
  - LYMPHADENOPATHY [None]
  - GINGIVAL HYPERPLASIA [None]
  - RENAL IMPAIRMENT [None]
  - SPLENOMEGALY [None]
  - HAEMOLYSIS [None]
  - GLOMERULAR FILTRATION RATE DECREASED [None]
  - BETA 2 MICROGLOBULIN INCREASED [None]
  - RHEUMATOID FACTOR INCREASED [None]
